FAERS Safety Report 20916621 (Version 2)
Quarter: 2022Q2

REPORT INFORMATION
  Report Type: Spontaneous
  Country: JP (occurrence: JP)
  Receive Date: 20220605
  Receipt Date: 20220609
  Transmission Date: 20220721
  Serious: Yes (Other)
  Sender: FDA-Public Use
  Company Number: JP-Eisai-202112967_LEN-EC_P_1

PATIENT
  Sex: Female

DRUGS (9)
  1. LENVIMA [Suspect]
     Active Substance: LENVATINIB
     Indication: Endometrial cancer
     Route: 048
     Dates: start: 20220127, end: 20220602
  2. KEYTRUDA [Suspect]
     Active Substance: PEMBROLIZUMAB
     Indication: Endometrial cancer
     Route: 041
     Dates: start: 20220127, end: 20220602
  3. MYSER [Concomitant]
     Indication: Palmar-plantar erythrodysaesthesia syndrome
     Dosage: DOSE AND FREQUENCY UNKNOWN
     Route: 062
  4. LOPEMIN [Concomitant]
     Indication: Diarrhoea
     Dosage: DOSE AND FREQUENCY UNKNOWN
     Route: 048
  5. LEVOTHYROXINE [Concomitant]
     Active Substance: LEVOTHYROXINE
     Indication: Hypothyroidism
     Route: 048
     Dates: start: 20220331
  6. LOXOPROFEN SODIUM [Concomitant]
     Active Substance: LOXOPROFEN SODIUM
     Indication: Pyrexia
     Dosage: PRN
     Route: 048
     Dates: start: 202202
  7. BETAMETHASONE DIPROPIONATE [Concomitant]
     Active Substance: BETAMETHASONE DIPROPIONATE
     Indication: Palmar-plantar erythrodysaesthesia syndrome
     Dosage: DOSE AND FREQUENCY UNKNOWN
     Route: 062
  8. GLYCOSAMINOGLYCANS [Concomitant]
     Active Substance: GLYCOSAMINOGLYCANS
     Indication: Palmar-plantar erythrodysaesthesia syndrome
     Dosage: DOSE AND FREQUENCY UNKNOWN
     Route: 062
  9. ELCATONIN [Concomitant]
     Active Substance: ELCATONIN
     Indication: Product used for unknown indication
     Dosage: DOSE AND FREQUENCY UNKNOWN
     Route: 065

REACTIONS (11)
  - Hypercalcaemia [Unknown]
  - Pyrexia [Recovered/Resolved]
  - Hypothyroidism [Recovered/Resolved]
  - Proteinuria [Not Recovered/Not Resolved]
  - Diarrhoea [Unknown]
  - Palmar-plantar erythrodysaesthesia syndrome [Unknown]
  - Hypertension [Unknown]
  - Malaise [Unknown]
  - Decreased appetite [Unknown]
  - Rash [Unknown]
  - Malignant neoplasm progression [Unknown]

NARRATIVE: CASE EVENT DATE: 20220127
